FAERS Safety Report 8696503 (Version 2)
Quarter: 2012Q4

REPORT INFORMATION
  Report Type: 
  Country: US (occurrence: US)
  Receive Date: 20120801
  Receipt Date: 20120830
  Transmission Date: 20130627
  Serious: Yes (Other)
  Sender: FDA-Public Use
  Company Number: US-PURDUE-USA-2012-0090782

PATIENT
  Sex: Female

DRUGS (4)
  1. BUTRANS [Suspect]
     Indication: FIBROMYALGIA
     Dosage: 10 mcg/hr, UNK
     Route: 062
     Dates: start: 20111014
  2. BUTRANS [Suspect]
     Dosage: 5 mcg/hr, UNK
     Route: 062
     Dates: start: 20110120, end: 20111014
  3. LEVSIN [Concomitant]
     Indication: GASTROINTESTINAL DISORDER
     Dosage: 0.125 mg, q6h prn
     Route: 048
  4. IMODIUM [Concomitant]
     Indication: UNEVALUABLE EVENT

REACTIONS (6)
  - Hepatic cyst [Not Recovered/Not Resolved]
  - Change of bowel habit [Unknown]
  - Nausea [Unknown]
  - Vomiting [Unknown]
  - Diarrhoea [Unknown]
  - Irritable bowel syndrome [Not Recovered/Not Resolved]
